FAERS Safety Report 6773130-7 (Version None)
Quarter: 2010Q2

REPORT INFORMATION
  Report Type: 
  Country: None (occurrence: None)
  Receive Date: 20100616
  Receipt Date: 20100611
  Transmission Date: 20101027
  Serious: Yes (Hospitalization)
  Sender: FDA-Public Use
  Company Number: US-GILEAD-2010-0029678

PATIENT
  Sex: Male
  Weight: 104.42 kg

DRUGS (12)
  1. LETAIRIS [Suspect]
     Indication: PULMONARY ARTERIAL HYPERTENSION
     Route: 048
     Dates: start: 20100126
  2. REVATIO [Concomitant]
  3. COUMADIN [Concomitant]
  4. LASIX [Concomitant]
  5. METOLAZONE [Concomitant]
  6. TOPROL-XL [Concomitant]
  7. DIGOXIN [Concomitant]
  8. GLUCOTROL [Concomitant]
  9. PROSCAR [Concomitant]
  10. CASODEX [Concomitant]
  11. FISH OIL [Concomitant]
  12. CALCIUM CARBONATE [Concomitant]

REACTIONS (2)
  - DUODENAL ULCER [None]
  - HAEMORRHAGE [None]
